FAERS Safety Report 9171417 (Version 2)
Quarter: 2013Q2

REPORT INFORMATION
  Report Type: Spontaneous
  Country: US (occurrence: None)
  Receive Date: 20130307
  Receipt Date: 20130410
  Transmission Date: 20140414
  Serious: Yes (Hospitalization, Other)
  Sender: FDA-Public Use
  Company Number: 2013PROUSA02600

PATIENT
  Age: 74 Year
  Sex: Male
  Weight: 95.7 kg

DRUGS (15)
  1. PROVENGE [Suspect]
     Indication: PROSTATE CANCER METASTATIC
     Dosage: 250 ML, SINGLE, INTRAVENOUS
     Route: 042
     Dates: start: 20130204, end: 20130204
  2. FLUTAMIDE (FLUTAMIDE) [Concomitant]
  3. ZETIA (EZETIMIBE) [Concomitant]
  4. TRILIPIX (CHOLINE FENOFIBRATE) [Concomitant]
  5. ACTOS (PIOGLITAZONE HYDROCHLORIDE) [Concomitant]
  6. METFORMIN HCL (METFORMIN HYDROCHLORIDE) [Concomitant]
  7. TAMSULOSIN HYDROCHLORIDE (TAMSULOSIN HYDROCHLORIDE) [Concomitant]
  8. DIOVAN (VALSARTAN) [Concomitant]
  9. FINASTERIDE (FINASTERIDE) [Concomitant]
  10. PRAVASTATIN SODIUM (PRAVASTATIN SODIUM) [Concomitant]
  11. VITAMIN D (COLECALCIFEROL) [Concomitant]
  12. VESICARE (SOLIFENACIN SUCCINATE) [Concomitant]
  13. LOVAZA (OMEGA-3-ACID ETHYL ESTER) [Concomitant]
  14. DOXYCYCLINE HYCLATE (DOXYCYCLINE HYDROCHLORIDE) 12/13/2012 TO UNK [Concomitant]
  15. ASPIRIN (ACETYLSALICYLIC ACID) [Concomitant]

REACTIONS (23)
  - Renal failure [None]
  - Renal failure acute [None]
  - Urinary retention [None]
  - Pulmonary oedema [None]
  - Chronic obstructive pulmonary disease [None]
  - Anaemia [None]
  - Prostatitis [None]
  - Respiratory distress [None]
  - Haematuria [None]
  - Brain natriuretic peptide increased [None]
  - Blood pressure increased [None]
  - Pleural effusion [None]
  - Atelectasis [None]
  - Metabolic acidosis [None]
  - Hyperphosphataemia [None]
  - Eosinophils urine present [None]
  - Cardiac failure congestive [None]
  - Lung infection [None]
  - Left ventricular dysfunction [None]
  - Dilatation ventricular [None]
  - Anaemia of chronic disease [None]
  - Haemorrhagic anaemia [None]
  - Tubulointerstitial nephritis [None]
